FAERS Safety Report 19891957 (Version 1)
Quarter: 2021Q3

REPORT INFORMATION
  Report Type: Spontaneous
  Country: US (occurrence: US)
  Receive Date: 20210928
  Receipt Date: 20210928
  Transmission Date: 20211014
  Serious: Yes (Other)
  Sender: FDA-Public Use
  Company Number: US-PERRIGO-21US026497

PATIENT
  Age: 36 Year
  Sex: Male

DRUGS (4)
  1. RANITIDINE HYDROCHLORIDE (852) [Suspect]
     Active Substance: RANITIDINE HYDROCHLORIDE
     Indication: URTICARIA
  2. RANITIDINE HYDROCHLORIDE (852) [Suspect]
     Active Substance: RANITIDINE HYDROCHLORIDE
     Indication: OESOPHAGEAL SPASM
  3. RANITIDINE HYDROCHLORIDE (852) [Suspect]
     Active Substance: RANITIDINE HYDROCHLORIDE
     Indication: DYSPEPSIA
     Dosage: DOSE FREQUENCY: OTHER ? RX RANITIDINE DAILY 10/2004 ? 4/2020, ALSO USED IN CONJUNCTION WITH OTC ZANT
     Route: 048
     Dates: start: 200410, end: 201909
  4. RANITIDINE HYDROCHLORIDE (852) [Suspect]
     Active Substance: RANITIDINE HYDROCHLORIDE
     Indication: GASTROOESOPHAGEAL REFLUX DISEASE

REACTIONS (3)
  - Basal cell carcinoma [Unknown]
  - Intervertebral disc operation [Unknown]
  - Prostate cancer [Unknown]

NARRATIVE: CASE EVENT DATE: 20070701
